FAERS Safety Report 9580873 (Version 1)
Quarter: 2013Q4

REPORT INFORMATION
  Report Type: Spontaneous
  Country: US (occurrence: US)
  Receive Date: 20131002
  Receipt Date: 20131002
  Transmission Date: 20140711
  Serious: Yes (Hospitalization)
  Sender: FDA-Public Use
  Company Number: US-B.I. PHARMACEUTICALS,INC./RIDGEFIELD-2013-BI-30177BP

PATIENT
  Age: 54 Year
  Sex: Female
  Weight: 88 kg

DRUGS (6)
  1. CATAPRES TTS [Suspect]
     Indication: HYPERTENSION
     Dosage: DOSE PER APPLICATION: 7.5 MG (0.3 MG / DAY);
     Route: 061
     Dates: start: 2006, end: 20130911
  2. LIPITOR [Concomitant]
     Indication: BLOOD CHOLESTEROL INCREASED
     Dosage: 80 MG
     Route: 048
  3. GLUCOPHAGE [Concomitant]
     Indication: DIABETES MELLITUS
     Dosage: 1000 MG
     Route: 048
  4. METOPROLOL [Concomitant]
     Indication: HYPERTENSION
     Dosage: 400 MG
     Route: 048
  5. SPIRONOLACTONE [Concomitant]
     Indication: HYPERTENSION
     Dosage: 25 MG
     Route: 048
  6. COZAAR [Concomitant]
     Indication: HYPERTENSION
     Dosage: 200 MG
     Route: 048

REACTIONS (2)
  - Myocardial infarction [Recovered/Resolved]
  - Blood pressure increased [Not Recovered/Not Resolved]
